FAERS Safety Report 25119378 (Version 2)
Quarter: 2025Q3

REPORT INFORMATION
  Report Type: Spontaneous
  Country: US (occurrence: US)
  Receive Date: 20250325
  Receipt Date: 20250923
  Transmission Date: 20251021
  Serious: No
  Sender: VERTEX
  Company Number: US-VERTEX PHARMACEUTICALS-2025-004231

PATIENT
  Age: 8 Year
  Sex: Male

DRUGS (1)
  1. TRIKAFTA [Suspect]
     Active Substance: ELEXACAFTOR\IVACAFTOR\TEZACAFTOR
     Indication: Cystic fibrosis
     Dosage: 2 TABLETS IN THE MORNING AND 1 TABLET IN THE EVENING
     Route: 048
     Dates: start: 202209

REACTIONS (1)
  - Cataract cortical [Not Recovered/Not Resolved]

NARRATIVE: CASE EVENT DATE: 20250312
